FAERS Safety Report 6626769-3 (Version None)
Quarter: 2010Q1

REPORT INFORMATION
  Report Type: 
  Country: None (occurrence: None)
  Receive Date: 20100311
  Receipt Date: 20100301
  Transmission Date: 20100710
  Serious: Yes (Other)
  Sender: FDA-Public Use
  Company Number: US-BIOGENIDEC-2007BI017411

PATIENT
  Age: 66 Year
  Sex: Female

DRUGS (3)
  1. AVONEX [Suspect]
     Indication: MULTIPLE SCLEROSIS
     Route: 030
     Dates: start: 20050126, end: 20070901
  2. AVONEX [Suspect]
     Route: 030
     Dates: start: 20070901
  3. PREDNISONE [Concomitant]

REACTIONS (20)
  - ABDOMINAL PAIN UPPER [None]
  - ARTHRITIS [None]
  - BREAST CANCER STAGE I [None]
  - BREAST MASS [None]
  - BREAST PAIN [None]
  - CELLULITIS [None]
  - DEPRESSION [None]
  - DRUG HYPERSENSITIVITY [None]
  - INFLUENZA LIKE ILLNESS [None]
  - LIGAMENT RUPTURE [None]
  - LIMB INJURY [None]
  - MENTAL DISORDER [None]
  - ONYCHALGIA [None]
  - PAIN [None]
  - PARAESTHESIA [None]
  - PARAESTHESIA ORAL [None]
  - PSYCHOMOTOR HYPERACTIVITY [None]
  - STRESS [None]
  - TENDON RUPTURE [None]
  - TENDONITIS [None]
